FAERS Safety Report 5878930-3 (Version None)
Quarter: 2008Q3

REPORT INFORMATION
  Report Type: 
  Country: None (occurrence: None)
  Receive Date: 20080910
  Receipt Date: 20080828
  Transmission Date: 20090109
  Serious: Yes (Hospitalization)
  Sender: FDA-Public Use
  Company Number: 1000000786

PATIENT
  Age: 73 Year
  Sex: Female

DRUGS (5)
  1. MEMANTINE HCL [Suspect]
     Dosage: 64 , ONCE, ORAL
     Route: 048
  2. ACETYLSALICYLIC ACID SRT [Suspect]
     Dosage: 25 DOSAGE FORMS, ONCE, ORAL
     Route: 048
  3. ACETAMINOPHEN [Suspect]
     Dosage: 40 DOSAGE FORMS, ONCE, ORAL
     Route: 048
  4. BETAHISTIN [Suspect]
     Dosage: 20 DOSAGE FORMS, ONCE, ORAL
     Route: 048
  5. BISOPROLOL FUMARATE AND HYDROCHLOROTHIAZIDE [Suspect]
     Dosage: 10 DOSAGE FORMS,ONCE, ORAL
     Route: 048

REACTIONS (4)
  - MENINGITIS [None]
  - OVERDOSE [None]
  - PNEUMONIA [None]
  - POISONING [None]
